FAERS Safety Report 7978919-4 (Version None)
Quarter: 2011Q4

REPORT INFORMATION
  Report Type: 
  Country: None (occurrence: None)
  Receive Date: 20111214
  Receipt Date: 20111202
  Transmission Date: 20120403
  Serious: Yes (Death)
  Sender: FDA-Public Use
  Company Number: CA-BAXTER-2011BH038437

PATIENT
  Sex: Male

DRUGS (10)
  1. DIANEAL [Suspect]
     Indication: PERITONEAL DIALYSIS
     Route: 033
  2. DIANEAL [Suspect]
     Indication: PERITONEAL DIALYSIS
     Route: 033
  3. DIANEAL PD-1 [Suspect]
     Indication: PERITONEAL DIALYSIS
     Route: 033
  4. EXTRANEAL [Suspect]
     Indication: PERITONEAL DIALYSIS
     Route: 033
  5. NUTRINEAL [Suspect]
     Indication: PERITONEAL DIALYSIS
     Route: 033
  6. DIANEAL [Suspect]
     Route: 033
  7. NUTRINEAL [Suspect]
     Route: 033
  8. DIANEAL [Suspect]
     Route: 033
  9. DIANEAL [Suspect]
     Route: 033
  10. DIANEAL [Suspect]
     Route: 033

REACTIONS (1)
  - DEATH [None]
